FAERS Safety Report 7223265-X (Version None)
Quarter: 2011Q1

REPORT INFORMATION
  Report Type: 
  Country: None (occurrence: None)
  Receive Date: 20110112
  Receipt Date: 20100402
  Transmission Date: 20110831
  Serious: No
  Sender: FDA-Public Use
  Company Number: US-ALLERGAN-1004374US

PATIENT
  Sex: Female

DRUGS (5)
  1. TRIGLIDE [Concomitant]
  2. VITAMIN D [Concomitant]
  3. RESTASIS [Suspect]
     Indication: DRY EYE
     Dosage: 1 GTT, BID
  4. MULTI-VITAMIN [Concomitant]
  5. LOVAZA [Concomitant]

REACTIONS (1)
  - MADAROSIS [None]
